FAERS Safety Report 8969190 (Version 1)
Quarter: 2012Q4

REPORT INFORMATION
  Report Type: 
  Country: US (occurrence: US)
  Receive Date: 20121218
  Receipt Date: 20121218
  Transmission Date: 20130627
  Serious: Yes (Other)
  Sender: FDA-Public Use
  Company Number: US-BRISTOL-MYERS SQUIBB COMPANY-16306243

PATIENT
  Age: 63 Year
  Sex: Male

DRUGS (1)
  1. ABILIFY [Suspect]
     Dosage: Dose increased to 1mg
     Dates: start: 2008

REACTIONS (7)
  - Depression [Not Recovered/Not Resolved]
  - Muscle atrophy [Not Recovered/Not Resolved]
  - Disturbance in attention [Not Recovered/Not Resolved]
  - Hyperhidrosis [Not Recovered/Not Resolved]
  - Weight decreased [Not Recovered/Not Resolved]
  - Drug ineffective [Unknown]
  - Wrong technique in drug usage process [Unknown]
